FAERS Safety Report 4795274-1 (Version None)
Quarter: 2005Q4

REPORT INFORMATION
  Report Type: 
  Country: None (occurrence: None)
  Receive Date: 20051006
  Receipt Date: 20050916
  Transmission Date: 20060501
  Serious: Yes (Other)
  Sender: FDA-Public Use
  Company Number: FI-2005-012316

PATIENT
  Age: 52 Year
  Sex: Female
  Weight: 64 kg

DRUGS (4)
  1. MIRENA [Suspect]
     Indication: CONTRACEPTION
     Dosage: SEE IMAGE
     Route: 015
     Dates: start: 20030609, end: 20050627
  2. MIRENA [Suspect]
     Indication: CONTRACEPTION
     Dosage: SEE IMAGE
     Route: 015
     Dates: start: 19960101
  3. CLIMARA [Suspect]
     Indication: HORMONE REPLACEMENT THERAPY
  4. PROGYNOVA (ESTRADIOL VALERATE) [Suspect]
     Indication: HORMONE REPLACEMENT THERAPY
     Dosage: 2 MG, ORAL
     Route: 048
     Dates: start: 20050320, end: 20050619

REACTIONS (1)
  - BREAST CANCER [None]
